FAERS Safety Report 24305035 (Version 3)
Quarter: 2025Q3

REPORT INFORMATION
  Report Type: Spontaneous
  Country: EU (occurrence: EU)
  Receive Date: 20240911
  Receipt Date: 20250710
  Transmission Date: 20251021
  Serious: Yes (Other)
  Sender: SANDOZ
  Company Number: EU-002147023-NVSC2020PL135262

PATIENT
  Age: 9 Year
  Sex: Male

DRUGS (24)
  1. ACTINOMYCIN D [Suspect]
     Active Substance: DACTINOMYCIN
     Indication: Alveolar rhabdomyosarcoma
     Route: 065
  2. CACTINOMYCIN [Suspect]
     Active Substance: CACTINOMYCIN
     Indication: Alveolar rhabdomyosarcoma
     Route: 065
  3. ACTINOMYCIN D [Suspect]
     Active Substance: DACTINOMYCIN
     Indication: Alveolar rhabdomyosarcoma
     Route: 065
  4. CARBOPLATIN [Suspect]
     Active Substance: CARBOPLATIN
     Indication: Rhabdomyosarcoma
     Route: 065
  5. CARBOPLATIN [Suspect]
     Active Substance: CARBOPLATIN
     Indication: Alveolar rhabdomyosarcoma
  6. CYTARABINE [Suspect]
     Active Substance: CYTARABINE
     Indication: Alveolar rhabdomyosarcoma
     Route: 065
  7. CYCLOPHOSPHAMIDE [Suspect]
     Active Substance: CYCLOPHOSPHAMIDE
     Indication: Rhabdomyosarcoma
     Route: 065
  8. CYCLOPHOSPHAMIDE [Suspect]
     Active Substance: CYCLOPHOSPHAMIDE
     Indication: Alveolar rhabdomyosarcoma
  9. DOXORUBICIN [Suspect]
     Active Substance: DOXORUBICIN
     Indication: Rhabdomyosarcoma
     Route: 065
  10. DOXORUBICIN [Suspect]
     Active Substance: DOXORUBICIN
     Indication: Alveolar rhabdomyosarcoma
  11. ETOPOSIDE [Suspect]
     Active Substance: ETOPOSIDE
     Indication: Rhabdomyosarcoma
     Route: 048
  12. ETOPOSIDE [Suspect]
     Active Substance: ETOPOSIDE
     Indication: Alveolar rhabdomyosarcoma
     Route: 042
  13. FLUDARABINE [Suspect]
     Active Substance: FLUDARABINE PHOSPHATE
     Indication: Alveolar rhabdomyosarcoma
     Route: 065
  14. IDARUBICIN [Suspect]
     Active Substance: IDARUBICIN
     Indication: Alveolar rhabdomyosarcoma
     Route: 065
  15. IDARUBICIN [Suspect]
     Active Substance: IDARUBICIN
     Indication: Rhabdomyosarcoma
     Route: 065
  16. IFOSFAMIDE [Suspect]
     Active Substance: IFOSFAMIDE
     Indication: Rhabdomyosarcoma
     Route: 065
  17. IFOSFAMIDE [Suspect]
     Active Substance: IFOSFAMIDE
     Indication: Alveolar rhabdomyosarcoma
  18. IRINOTECAN [Suspect]
     Active Substance: IRINOTECAN
     Indication: Rhabdomyosarcoma
     Route: 065
  19. IRINOTECAN [Suspect]
     Active Substance: IRINOTECAN
     Indication: Alveolar rhabdomyosarcoma
  20. TOPOTECAN [Suspect]
     Active Substance: TOPOTECAN HYDROCHLORIDE
     Indication: Rhabdomyosarcoma
     Route: 065
  21. TOPOTECAN [Suspect]
     Active Substance: TOPOTECAN HYDROCHLORIDE
     Indication: Alveolar rhabdomyosarcoma
  22. TROFOSFAMIDE [Suspect]
     Active Substance: TROFOSFAMIDE
     Indication: Alveolar rhabdomyosarcoma
     Route: 065
  23. VINCRISTINE [Suspect]
     Active Substance: VINCRISTINE
     Indication: Rhabdomyosarcoma
     Route: 065
  24. VINCRISTINE [Suspect]
     Active Substance: VINCRISTINE
     Indication: Alveolar rhabdomyosarcoma

REACTIONS (17)
  - Acute myeloid leukaemia [Unknown]
  - Malignant neoplasm progression [Unknown]
  - Pneumonia fungal [Unknown]
  - Rhabdomyosarcoma recurrent [Not Recovered/Not Resolved]
  - Thrombocytopenia [Unknown]
  - Hyperleukocytosis [Unknown]
  - Myelodysplastic syndrome [Unknown]
  - Myelodysplastic syndrome with excess blasts [Unknown]
  - Chromosome analysis abnormal [Unknown]
  - Leukaemia [Not Recovered/Not Resolved]
  - Neoplasm progression [Unknown]
  - Toxicity to various agents [Unknown]
  - Rhabdomyosarcoma recurrent [Not Recovered/Not Resolved]
  - Acute myeloid leukaemia [Not Recovered/Not Resolved]
  - Hepatosplenomegaly [Unknown]
  - Anaemia [Unknown]
  - Product use in unapproved indication [Unknown]

NARRATIVE: CASE EVENT DATE: 20090101
